FAERS Safety Report 6975523-1 (Version None)
Quarter: 2010Q3

REPORT INFORMATION
  Report Type: 
  Country: None (occurrence: None)
  Receive Date: 20100910
  Receipt Date: 20100901
  Transmission Date: 20110219
  Serious: Yes (Hospitalization)
  Sender: FDA-Public Use
  Company Number: US-BIOGENIDEC-2010BI030675

PATIENT
  Age: 49 Year
  Sex: Female

DRUGS (2)
  1. AVONEX [Suspect]
     Indication: MULTIPLE SCLEROSIS
     Route: 030
     Dates: start: 20100802, end: 20100802
  2. AVONEX [Suspect]
     Route: 030
     Dates: start: 20100809, end: 20100809

REACTIONS (5)
  - DIARRHOEA [None]
  - INFLUENZA LIKE ILLNESS [None]
  - NEPHROLITHIASIS [None]
  - UROSEPSIS [None]
  - VOMITING [None]
